FAERS Safety Report 9864833 (Version 2)
Quarter: 2014Q2

REPORT INFORMATION
  Report Type: Spontaneous
  Country: US (occurrence: US)
  Receive Date: 20140203
  Receipt Date: 20140402
  Transmission Date: 20141212
  Serious: No
  Sender: FDA-Public Use
  Company Number: US-AMGEN-USASP2014002650

PATIENT
  Age: 68 Year
  Sex: Female
  Weight: 78.91 kg

DRUGS (5)
  1. ENBREL [Suspect]
     Indication: PSORIATIC ARTHROPATHY
     Dosage: 50 MG, QWK
     Route: 058
     Dates: start: 20120523
  2. ENBREL [Suspect]
     Indication: PSORIASIS
  3. PLAVIX [Suspect]
     Indication: AORTIC BYPASS
     Dosage: 75 MG, QD
     Route: 048
     Dates: start: 201208
  4. ASPIRIN [Suspect]
     Indication: PRODUCT USED FOR UNKNOWN INDICATION
     Dosage: 81 MG, QD
     Route: 048
     Dates: start: 2008
  5. METHOTREXATE [Suspect]
     Indication: PSORIATIC ARTHROPATHY
     Dosage: 25 MG, QWK
     Route: 048
     Dates: start: 2003

REACTIONS (1)
  - Injection site bruising [Recovered/Resolved]
